APPROVED DRUG PRODUCT: GLYCOPYRROLATE
Active Ingredient: GLYCOPYRROLATE
Strength: 0.2MG/ML
Dosage Form/Route: INJECTABLE;INJECTION
Application: A213238 | Product #001 | TE Code: AP
Applicant: ACCORD HEALTHCARE INC
Approved: Jul 8, 2020 | RLD: No | RS: No | Type: RX